FAERS Safety Report 11678217 (Version 1)
Quarter: 2015Q4

REPORT INFORMATION
  Report Type: Spontaneous
  Country: US (occurrence: US)
  Receive Date: 20151027
  Receipt Date: 20151027
  Transmission Date: 20160304
  Serious: No
  Sender: FDA-Public Use
  Company Number: US-ELI_LILLY_AND_COMPANY-US201004001732

PATIENT
  Age: 72 Year
  Sex: Female

DRUGS (4)
  1. FORTEO [Suspect]
     Active Substance: TERIPARATIDE
     Indication: OSTEOPOROSIS
     Dosage: 20 UG, DAILY (1/D)
     Dates: start: 20100310
  2. CALCIUM [Concomitant]
     Active Substance: CALCIUM
  3. HYDROCHLOROTHIAZIDE. [Concomitant]
     Active Substance: HYDROCHLOROTHIAZIDE
     Dosage: 25 MG, UNK
  4. FORTEO [Suspect]
     Active Substance: TERIPARATIDE
     Dosage: 20 UG, DAILY (1/D)

REACTIONS (7)
  - Musculoskeletal pain [Unknown]
  - Hypovitaminosis [Not Recovered/Not Resolved]
  - Myalgia [Unknown]
  - Tumour marker increased [Unknown]
  - Vitamin D decreased [Recovered/Resolved]
  - Hypokinesia [Unknown]
  - Drug interaction [Unknown]

NARRATIVE: CASE EVENT DATE: 20100331
